FAERS Safety Report 11889847 (Version 1)
Quarter: 2016Q1

REPORT INFORMATION
  Report Type: Spontaneous
  Country: US (occurrence: US)
  Receive Date: 20160105
  Receipt Date: 20160105
  Transmission Date: 20160526
  Serious: No
  Sender: FDA-Public Use
  Company Number: US-PERRIGO-14US012395

PATIENT
  Age: 68 Year
  Sex: Male
  Weight: 74.83 kg

DRUGS (3)
  1. GUAIFENESIN 600 MG 498 [Suspect]
     Active Substance: GUAIFENESIN
     Dosage: 600 MG, IN THE EVENING
     Route: 048
     Dates: start: 20141216, end: 20141216
  2. GUAIFENESIN 600 MG 498 [Suspect]
     Active Substance: GUAIFENESIN
     Indication: PULMONARY CONGESTION
     Dosage: 600 MG, IN THE MORNING
     Route: 048
     Dates: start: 20141217, end: 20141217
  3. CEPHALEXIN                         /00145501/ [Concomitant]
     Active Substance: CEPHALEXIN
     Indication: PNEUMONIA
     Dosage: UNK, UNK
     Route: 065
     Dates: start: 20141213

REACTIONS (2)
  - Headache [Not Recovered/Not Resolved]
  - Drug ineffective [Unknown]

NARRATIVE: CASE EVENT DATE: 20141216
